FAERS Safety Report 17526606 (Version 4)
Quarter: 2020Q3

REPORT INFORMATION
  Report Type: Spontaneous
  Country: IN (occurrence: IN)
  Receive Date: 20200311
  Receipt Date: 20200924
  Transmission Date: 20201102
  Serious: Yes (Other)
  Sender: FDA-Public Use
  Company Number: IN-PFIZER INC-2020004421

PATIENT
  Age: 67 Year
  Sex: Female

DRUGS (2)
  1. SUTENT [Suspect]
     Active Substance: SUNITINIB MALATE
     Indication: METASTATIC RENAL CELL CARCINOMA
     Dosage: 50 MG, UNK
     Route: 048
  2. SUTENT [Suspect]
     Active Substance: SUNITINIB MALATE
     Dosage: 37.5 MG, CYCLIC (1XDAY FOR 2 WEEKS ON AND 1WEEK OFF)
     Route: 048
     Dates: start: 20200110

REACTIONS (12)
  - Paralysis [Unknown]
  - Headache [Unknown]
  - Blood pressure decreased [Unknown]
  - Swelling [Unknown]
  - Cough [Unknown]
  - Stomatitis [Unknown]
  - Pain [Unknown]
  - Hypertension [Unknown]
  - Arthralgia [Unknown]
  - Neck pain [Unknown]
  - Dysphonia [Unknown]
  - Eating disorder [Unknown]

NARRATIVE: CASE EVENT DATE: 20200622
